APPROVED DRUG PRODUCT: CYCLOBENZAPRINE HYDROCHLORIDE
Active Ingredient: CYCLOBENZAPRINE HYDROCHLORIDE
Strength: 10MG
Dosage Form/Route: TABLET;ORAL
Application: A073143 | Product #001
Applicant: WATSON LABORATORIES INC
Approved: Nov 27, 1991 | RLD: No | RS: No | Type: DISCN